FAERS Safety Report 7165298-8 (Version None)
Quarter: 2010Q4

REPORT INFORMATION
  Report Type: 
  Country: None (occurrence: None)
  Receive Date: 20101215
  Receipt Date: 20091223
  Transmission Date: 20110411
  Serious: Yes (Other)
  Sender: FDA-Public Use
  Company Number: US-AMGEN-QUU380103

PATIENT

DRUGS (2)
  1. ENBREL [Suspect]
     Indication: PSORIASIS
     Dosage: 50 MG, QWK
     Route: 058
     Dates: start: 20070801, end: 20091001
  2. ATORVASTATIN CALCIUM [Concomitant]
     Dosage: UNK UNK, UNK

REACTIONS (1)
  - MULTIPLE SCLEROSIS [None]
